FAERS Safety Report 6551365-6 (Version None)
Quarter: 2010Q1

REPORT INFORMATION
  Report Type: 
  Country: None (occurrence: None)
  Receive Date: 20100120
  Receipt Date: 20100105
  Transmission Date: 20100710
  Serious: Yes (Other)
  Sender: FDA-Public Use
  Company Number: DSM-2009-01987

PATIENT
  Age: 78 Year
  Sex: Female

DRUGS (4)
  1. AMLODIPINE BESYLATE AND OLMESARTAN MEDOXOMIL [Suspect]
     Indication: HYPERTENSION
     Dosage: 40/10 MG, ORAL
     Route: 048
     Dates: start: 20091101
  2. PRAVASTATIN SODIUM [Concomitant]
  3. XALATAN [Concomitant]
     Route: 047
  4. ASPIRIN [Concomitant]

REACTIONS (1)
  - HYPERSENSITIVITY [None]
